FAERS Safety Report 15744816 (Version 1)
Quarter: 2018Q4

REPORT INFORMATION
  Report Type: Other
  Country: JP (occurrence: JP)
  Receive Date: 20181220
  Receipt Date: 20181220
  Transmission Date: 20190205
  Serious: Yes (Death, Hospitalization)
  Sender: FDA-Public Use
  Company Number: JP-ACTELION-A-CH2018-183800

PATIENT
  Age: 54 Year
  Sex: Female

DRUGS (5)
  1. BOSENTAN. [Suspect]
     Active Substance: BOSENTAN
     Indication: PULMONARY ARTERIAL HYPERTENSION
     Route: 048
  2. PREDONINE [Concomitant]
     Active Substance: PREDNISOLONE
     Dosage: 20 MG, UNK
  3. AMBRISENTAN [Concomitant]
     Active Substance: AMBRISENTAN
  4. PREDONINE [Concomitant]
     Active Substance: PREDNISOLONE
     Dosage: 30 UNK, UNK
  5. SILDENAFIL. [Concomitant]
     Active Substance: SILDENAFIL

REACTIONS (7)
  - Concomitant disease progression [Fatal]
  - Pulmonary arterial pressure increased [Fatal]
  - Catheterisation cardiac [Unknown]
  - Chronic respiratory failure [Fatal]
  - Pulmonary arterial wedge pressure increased [Fatal]
  - Pulmonary vein occlusion [Unknown]
  - Interstitial lung disease [Unknown]
